FAERS Safety Report 8415364-1 (Version None)
Quarter: 2012Q2

REPORT INFORMATION
  Report Type: 
  Country: None (occurrence: None)
  Receive Date: 20120606
  Receipt Date: 20120531
  Transmission Date: 20120825
  Serious: Yes (Hospitalization)
  Sender: FDA-Public Use
  Company Number: PHHY2012MX044398

PATIENT
  Sex: Male

DRUGS (5)
  1. CLOIZONE [Concomitant]
     Dosage: 1.5 DF, UNK
  2. EXELON [Suspect]
     Indication: DEMENTIA ALZHEIMER'S TYPE
     Dosage: 9.5 MG, DAILY
     Route: 062
  3. DOMPERIDONE [Concomitant]
     Dosage: 3 DF, DAILY
  4. OMEPRAZOLE [Concomitant]
  5. BIPERIDEN HYDROCHLORIDE TAB [Concomitant]

REACTIONS (1)
  - BURSITIS [None]
